FAERS Safety Report 5373274-0 (Version None)
Quarter: 2007Q2

REPORT INFORMATION
  Report Type: 
  Country: None (occurrence: None)
  Receive Date: 20070628
  Receipt Date: 20070615
  Transmission Date: 20071010
  Serious: Yes (Hospitalization)
  Sender: FDA-Public Use
  Company Number: US-JNJFOC-20070604230

PATIENT
  Sex: Female
  Weight: 50.8 kg

DRUGS (4)
  1. DURAGESIC-100 [Suspect]
     Indication: PAIN
     Route: 062
  2. PRILOSEC [Concomitant]
     Indication: GASTROOESOPHAGEAL REFLUX DISEASE
     Route: 048
  3. PANOKASE [Concomitant]
     Indication: PANCREATIC ENZYMES
     Dosage: WITH MEALS
     Route: 048
  4. ROXYCODONE [Concomitant]
     Indication: BREAKTHROUGH PAIN
     Dosage: 1 EVERY 4-6 HOURS
     Route: 048

REACTIONS (9)
  - BACK PAIN [None]
  - BRONCHITIS [None]
  - DEPRESSION [None]
  - DRUG ADMINISTERED AT INAPPROPRIATE SITE [None]
  - INSOMNIA [None]
  - LOWER RESPIRATORY TRACT INFECTION BACTERIAL [None]
  - MULTIPLE ALLERGIES [None]
  - MYALGIA [None]
  - WRONG TECHNIQUE IN DRUG USAGE PROCESS [None]
